FAERS Safety Report 19589763 (Version 2)
Quarter: 2021Q3

REPORT INFORMATION
  Report Type: Spontaneous
  Country: US (occurrence: US)
  Receive Date: 20210721
  Receipt Date: 20210809
  Transmission Date: 20211014
  Serious: Yes (Other)
  Sender: FDA-Public Use
  Company Number: US-SAOL THERAPEUTICS-2021SAO00243

PATIENT
  Age: 60 Year
  Sex: Male

DRUGS (12)
  1. TEMAZEPAM. [Concomitant]
     Active Substance: TEMAZEPAM
  2. NORCO [Concomitant]
     Active Substance: ACETAMINOPHEN\HYDROCODONE BITARTRATE
  3. TIZANIDINE. [Concomitant]
     Active Substance: TIZANIDINE
  4. LEVOXYL [Concomitant]
     Active Substance: LEVOTHYROXINE SODIUM
  5. LIORESAL [Suspect]
     Active Substance: BACLOFEN
     Dosage: ^72 %^
     Route: 037
  6. BACLOFEN. [Concomitant]
     Active Substance: BACLOFEN
     Dosage: 20 MG, 3X/DAY
     Route: 048
  7. METHYLPHENIDATE. [Concomitant]
     Active Substance: METHYLPHENIDATE
  8. OXCARBAZEPINE. [Concomitant]
     Active Substance: OXCARBAZEPINE
  9. METOPROLOL. [Concomitant]
     Active Substance: METOPROLOL
  10. LIORESAL [Suspect]
     Active Substance: BACLOFEN
     Indication: MUSCLE SPASTICITY
     Dosage: 34 ?G, \DAY (1.4 ?G/HR)
     Route: 037
     Dates: start: 202009
  11. AMLODIPINE [Concomitant]
     Active Substance: AMLODIPINE BESYLATE
  12. GABAPENTIN. [Concomitant]
     Active Substance: GABAPENTIN

REACTIONS (14)
  - Feeling abnormal [Recovered/Resolved]
  - Device dislocation [Unknown]
  - Agitation [Recovered/Resolved]
  - Therapy non-responder [Recovered/Resolved]
  - Unevaluable event [Recovered/Resolved]
  - Abnormal behaviour [Recovered/Resolved]
  - Drug withdrawal syndrome [Recovered/Resolved]
  - Sleep disorder [Recovered/Resolved]
  - Pain [Recovered/Resolved]
  - Malaise [Recovered/Resolved]
  - Tremor [Recovered/Resolved]
  - Multiple sclerosis [Recovered/Resolved]
  - Implant site pain [Recovered/Resolved]
  - Paranoia [Recovered/Resolved]

NARRATIVE: CASE EVENT DATE: 20201113
